FAERS Safety Report 11669592 (Version 1)
Quarter: 2015Q4

REPORT INFORMATION
  Report Type: Spontaneous
  Country: JP (occurrence: JP)
  Receive Date: 20151027
  Receipt Date: 20151027
  Transmission Date: 20160304
  Serious: Yes (Death, Hospitalization, Other)
  Sender: FDA-Public Use
  Company Number: PHJP1997JP002277

PATIENT
  Age: 13 Year
  Sex: Female

DRUGS (1)
  1. VOLTAREN [Suspect]
     Active Substance: DICLOFENAC SODIUM
     Indication: PRODUCT USED FOR UNKNOWN INDICATION
     Route: 065

REACTIONS (10)
  - Cardiac failure [Fatal]
  - Pharyngeal inflammation [Unknown]
  - Abdominal pain [Unknown]
  - Myocarditis [Fatal]
  - Tachycardia [Unknown]
  - Cyanosis [Unknown]
  - Renal failure [Fatal]
  - Rales [Unknown]
  - Cough [Unknown]
  - Dyspnoea [Unknown]
